FAERS Safety Report 9395524 (Version 1)
Quarter: 2013Q3

REPORT INFORMATION
  Report Type: Spontaneous
  Country: JP (occurrence: JP)
  Receive Date: 20130711
  Receipt Date: 20130711
  Transmission Date: 20140515
  Serious: Yes (Other)
  Sender: FDA-Public Use
  Company Number: JP-ASTELLAS-2013JP007422

PATIENT
  Age: 47 Year
  Sex: Male

DRUGS (6)
  1. PROGRAF [Suspect]
     Indication: IMMUNOSUPPRESSANT DRUG THERAPY
     Route: 065
  2. PROGRAF [Suspect]
     Dosage: 2.8 MG, UNKNOWN/D
     Route: 065
     Dates: start: 201107
  3. PROGRAF [Suspect]
     Dosage: 2 MG, UNKNOWN/D
     Route: 065
  4. PREDNISOLONE [Concomitant]
     Indication: IMMUNOSUPPRESSANT DRUG THERAPY
     Route: 065
  5. PREDNISOLONE [Concomitant]
     Dosage: 30 MG, UNKNOWN/D
     Route: 065
     Dates: start: 201107
  6. PREDNISOLONE [Concomitant]
     Dosage: 10.25 MG, UNKNOWN/D
     Route: 065

REACTIONS (2)
  - Drug ineffective [Unknown]
  - Chronic graft versus host disease [Unknown]
